FAERS Safety Report 20208206 (Version 1)
Quarter: 2021Q4

REPORT INFORMATION
  Report Type: Spontaneous
  Country: PR (occurrence: PR)
  Receive Date: 20211220
  Receipt Date: 20211220
  Transmission Date: 20220303
  Serious: Yes (Other)
  Sender: FDA-Public Use
  Company Number: PR-JNJFOC-20211232421

PATIENT
  Sex: Female

DRUGS (1)
  1. XARELTO [Suspect]
     Active Substance: RIVAROXABAN
     Indication: Deep vein thrombosis
     Route: 048

REACTIONS (6)
  - Thrombosis [Unknown]
  - Blindness unilateral [Unknown]
  - Balance disorder [Unknown]
  - Contusion [Unknown]
  - Incorrect dose administered [Unknown]
  - Off label use [Unknown]
